FAERS Safety Report 9851282 (Version 2)
Quarter: 2014Q1

REPORT INFORMATION
  Report Type: Report from Study
  Country: DE (occurrence: DE)
  Receive Date: 20140128
  Receipt Date: 20140219
  Transmission Date: 20141002
  Serious: Yes (Death, Other)
  Sender: FDA-Public Use
  Company Number: DE-ROCHE-1338374

PATIENT
  Age: 48 Year
  Sex: Male
  Weight: 124 kg

DRUGS (6)
  1. TOCILIZUMAB [Suspect]
     Indication: AUTOIMMUNE DISORDER
     Route: 042
     Dates: start: 20090715, end: 201310
  2. SILDENAFIL [Concomitant]
     Indication: PULMONARY HYPERTENSION
     Route: 048
  3. AMBRISENTAN [Concomitant]
     Indication: PULMONARY HYPERTENSION
     Route: 048
  4. XARELTO [Concomitant]
     Indication: THROMBOSIS
     Route: 048
  5. RAMIPRIL [Concomitant]
     Indication: HYPERTENSION
     Route: 048
  6. MIRTAZAPIN [Concomitant]
     Indication: DEPRESSION
     Route: 048

REACTIONS (3)
  - Sepsis [Fatal]
  - Diverticulitis [Fatal]
  - Renal failure [Unknown]
